FAERS Safety Report 5229041-1 (Version None)
Quarter: 2007Q1

REPORT INFORMATION
  Report Type: 
  Country: None (occurrence: None)
  Receive Date: 20070205
  Receipt Date: 20070117
  Transmission Date: 20070707
  Serious: Yes (Life-Threatening, Hospitalization, Other)
  Sender: FDA-Public Use
  Company Number: US-BRISTOL-MYERS SQUIBB COMPANY-13656640

PATIENT
  Age: 57 Year
  Sex: Male

DRUGS (4)
  1. PRINIVIL [Suspect]
     Route: 048
  2. FUROSEMIDE [Suspect]
  3. NADOLOL [Suspect]
  4. SPIRONOLACTONE [Suspect]
     Route: 048

REACTIONS (1)
  - RENAL FAILURE ACUTE [None]
